FAERS Safety Report 6166393-2 (Version None)
Quarter: 2009Q2

REPORT INFORMATION
  Report Type: 
  Country: None (occurrence: None)
  Receive Date: 20090422
  Receipt Date: 20090422
  Transmission Date: 20091009
  Serious: Yes (Hospitalization)
  Sender: FDA-Public Use
  Company Number: None

PATIENT
  Age: 55 Year
  Sex: Female
  Weight: 109 kg

DRUGS (13)
  1. AROMASIN [Suspect]
     Indication: BREAST CANCER METASTATIC
     Dosage: 25 MG ONCE DAILY PO
     Route: 048
     Dates: start: 20090313
  2. FASLODEX [Suspect]
     Indication: BREAST CANCER METASTATIC
     Dosage: 250 MG ONCE EACH 28 DAY IM
     Route: 030
     Dates: start: 20090319
  3. FASLODEX [Suspect]
     Indication: BREAST CANCER METASTATIC
     Dosage: 250 MG ONCE EACH 28 DAY IM
     Route: 030
     Dates: start: 20090416
  4. ALBUTEROL PRN [Concomitant]
  5. SYMBICORT [Concomitant]
  6. SINGULAIR [Concomitant]
  7. PRAVASTATIN SODIUM [Concomitant]
  8. ZOLOFT [Concomitant]
  9. LISINOPRIL [Concomitant]
  10. ADVIL [Concomitant]
  11. TRAMADOL HCL [Concomitant]
  12. AROMASIN [Concomitant]
  13. RANITIDINE [Concomitant]

REACTIONS (1)
  - PULMONARY EMBOLISM [None]
